FAERS Safety Report 5214976-6 (Version None)
Quarter: 2007Q1

REPORT INFORMATION
  Report Type: 
  Country: None (occurrence: None)
  Receive Date: 20070122
  Receipt Date: 20070110
  Transmission Date: 20070707
  Serious: Yes (Other)
  Sender: FDA-Public Use
  Company Number: IE-PFIZER INC-2007003601

PATIENT

DRUGS (1)
  1. EPANUTIN [Suspect]
     Route: 048

REACTIONS (1)
  - SURGERY [None]
